FAERS Safety Report 6998053-X (Version None)
Quarter: 2010Q3

REPORT INFORMATION
  Report Type: 
  Country: None (occurrence: None)
  Receive Date: 20100920
  Receipt Date: 20100226
  Transmission Date: 20110219
  Serious: Yes (Hospitalization)
  Sender: FDA-Public Use
  Company Number: US-ASTRAZENECA-2010SE08737

PATIENT

DRUGS (2)
  1. SEROQUEL [Suspect]
     Route: 048
     Dates: start: 20090701
  2. SEROQUEL [Suspect]
     Route: 048

REACTIONS (1)
  - PANCREATITIS [None]
